FAERS Safety Report 25212594 (Version 1)
Quarter: 2025Q2

REPORT INFORMATION
  Report Type: Report from Study
  Country: US (occurrence: US)
  Receive Date: 20250418
  Receipt Date: 20250418
  Transmission Date: 20250716
  Serious: Yes (Death)
  Sender: INSMED
  Company Number: US-INSMED, INC.-2023-04282-US

PATIENT
  Age: 71 Year
  Sex: Female

DRUGS (2)
  1. ARIKAYCE [Suspect]
     Active Substance: AMIKACIN
     Indication: Mycobacterium avium complex infection
     Dosage: 590 MILLIGRAM, QD
     Route: 055
     Dates: start: 20221104, end: 202311
  2. ARIKAYCE [Suspect]
     Active Substance: AMIKACIN
     Dosage: 590 MILLIGRAM, QD
     Route: 055
     Dates: start: 20250220, end: 2025

REACTIONS (9)
  - Death [Fatal]
  - Tongue disorder [Unknown]
  - Ageusia [Unknown]
  - Taste disorder [Not Recovered/Not Resolved]
  - Dry mouth [Unknown]
  - Decreased appetite [Not Recovered/Not Resolved]
  - Malaise [Not Recovered/Not Resolved]
  - Adverse drug reaction [Unknown]
  - Device issue [Unknown]

NARRATIVE: CASE EVENT DATE: 20231103
